FAERS Safety Report 11647532 (Version 3)
Quarter: 2015Q4

REPORT INFORMATION
  Report Type: Spontaneous
  Country: FR (occurrence: FR)
  Receive Date: 20151021
  Receipt Date: 20151117
  Transmission Date: 20160304
  Serious: Yes (Other)
  Sender: FDA-Public Use
  Company Number: FR-009507513-1510FRA009624

PATIENT
  Sex: Male
  Weight: 86 kg

DRUGS (4)
  1. VELMETIA [Suspect]
     Active Substance: METFORMIN\SITAGLIPTIN
     Indication: TYPE 2 DIABETES MELLITUS
     Dosage: 1 DF IN THE MORNING AND 1 DF AT NIGHT
     Route: 048
     Dates: start: 20150724, end: 20150926
  2. LANTUS [Concomitant]
     Active Substance: INSULIN GLARGINE
     Indication: TYPE 2 DIABETES MELLITUS
     Dosage: 100U/ML, AT 24 IU, QPM
     Dates: start: 2014
  3. PARIET [Concomitant]
     Active Substance: RABEPRAZOLE SODIUM
     Dosage: 20 MG, QAM
  4. DIAMICRON [Concomitant]
     Active Substance: GLICLAZIDE
     Dosage: 1/2 TABLET, AT BREAKFAST
     Dates: start: 2014

REACTIONS (2)
  - Musculoskeletal pain [Recovered/Resolved with Sequelae]
  - Oropharyngeal pain [Unknown]

NARRATIVE: CASE EVENT DATE: 2015
